FAERS Safety Report 9302815 (Version 1)
Quarter: 2013Q2

REPORT INFORMATION
  Report Type: Spontaneous
  Country: US (occurrence: US)
  Receive Date: 20130522
  Receipt Date: 20130522
  Transmission Date: 20140414
  Serious: No
  Sender: FDA-Public Use
  Company Number: US-B.I. PHARMACEUTICALS,INC./RIDGEFIELD-2013-BI-14134BP

PATIENT
  Age: 59 Year
  Sex: Female
  Weight: 109 kg

DRUGS (8)
  1. PRADAXA [Suspect]
     Indication: ATRIAL FIBRILLATION
     Dosage: 300 MG
     Route: 048
     Dates: start: 2011
  2. GABAPENTIN [Concomitant]
     Indication: NEUROPATHY PERIPHERAL
     Dosage: 300 MG
     Route: 048
  3. METFORMIN ER [Concomitant]
     Indication: DIABETES MELLITUS
     Dosage: 2000 MG
     Route: 048
  4. LISINOPRIL [Concomitant]
     Indication: HYPERTENSION
     Dosage: 5 MG
     Route: 048
  5. LOPID [Concomitant]
     Indication: BLOOD CHOLESTEROL INCREASED
     Dosage: 1200 MG
     Route: 048
  6. METOPROLOL [Concomitant]
     Indication: HEART RATE INCREASED
     Dosage: 100 MG
     Route: 048
  7. SINGULAR [Concomitant]
     Indication: SINUSITIS
     Dosage: 10 MG
     Route: 048
  8. ASPIRIN [Concomitant]
     Indication: BLOOD VISCOSITY INCREASED
     Dosage: 81 MG
     Route: 048

REACTIONS (4)
  - Fall [Recovered/Resolved]
  - Ankle fracture [Not Recovered/Not Resolved]
  - Foot fracture [Not Recovered/Not Resolved]
  - Ankle fracture [Not Recovered/Not Resolved]
